FAERS Safety Report 21123675 (Version 1)
Quarter: 2022Q3

REPORT INFORMATION
  Report Type: Spontaneous
  Country: US (occurrence: US)
  Receive Date: 20220725
  Receipt Date: 20220725
  Transmission Date: 20221026
  Serious: No
  Sender: FDA-Public Use
  Company Number: US-drreddys-SPO/USA/22/0152464

PATIENT
  Age: 36 Year
  Sex: Female

DRUGS (2)
  1. ACCUTANE [Suspect]
     Active Substance: ISOTRETINOIN
     Indication: Product used for unknown indication
     Dosage: RMA ISSUE DATE: 11 FEBRUARY 2022 02:35:55 PM, 8 APRIL 2022 01:31:54 PM, 13 MAY 2022 11:35:45 AM AND
  2. ACCUTANE [Suspect]
     Active Substance: ISOTRETINOIN
     Dosage: RMA ISSUE DATE: 9 MARCH 2022 03:13:26 PM

REACTIONS (1)
  - Blood triglycerides increased [Unknown]
